FAERS Safety Report 14925788 (Version 2)
Quarter: 2018Q2

REPORT INFORMATION
  Report Type: Spontaneous
  Country: US (occurrence: US)
  Receive Date: 20180522
  Receipt Date: 20180607
  Transmission Date: 20180711
  Serious: Yes (Hospitalization)
  Sender: FDA-Public Use
  Company Number: US-IMPAX LABORATORIES, INC-2018-IPXL-01670

PATIENT
  Age: 37 Year
  Sex: Male

DRUGS (1)
  1. MORPHINE SULFATE EXTENDED-RELEASE [Suspect]
     Active Substance: MORPHINE SULFATE
     Indication: BACK PAIN
     Dosage: 15 MG TABLETS, DISSOLVED IN TAP WATER, INJECTED 3 OCCASIONS OVER THE 5-7 DAYS
     Route: 042

REACTIONS (2)
  - Pericarditis [Recovered/Resolved]
  - Incorrect route of drug administration [Unknown]
